FAERS Safety Report 25744324 (Version 1)
Quarter: 2025Q3

REPORT INFORMATION
  Report Type: Spontaneous
  Country: GB (occurrence: GB)
  Receive Date: 20250901
  Receipt Date: 20250901
  Transmission Date: 20251020
  Serious: Yes (Other)
  Sender: CELLTRION
  Company Number: None

PATIENT

DRUGS (3)
  1. YUFLYMA [Suspect]
     Active Substance: ADALIMUMAB-AATY
     Indication: Adverse drug reaction
  2. YUFLYMA [Suspect]
     Active Substance: ADALIMUMAB-AATY
  3. CANDESARTAN [Concomitant]
     Active Substance: CANDESARTAN

REACTIONS (2)
  - Depressed mood [Recovering/Resolving]
  - Intentional product use issue [Unknown]
